FAERS Safety Report 8532002-8 (Version None)
Quarter: 2012Q3

REPORT INFORMATION
  Report Type: 
  Country: None (occurrence: None)
  Receive Date: 20120723
  Receipt Date: 20120717
  Transmission Date: 20120928
  Serious: Yes (Death)
  Sender: FDA-Public Use
  Company Number: SE-PFIZER INC-2012131089

PATIENT
  Age: 27 Year
  Sex: Male

DRUGS (5)
  1. METHADON HCL TAB [Interacting]
     Indication: DRUG DEPENDENCE
     Dosage: 60 MG, DAILY
     Dates: start: 20120312
  2. LYRICA [Suspect]
     Indication: ANXIETY
     Dosage: 600 MG DAILY
     Route: 048
     Dates: end: 20111220
  3. PROPAVAN [Concomitant]
     Dosage: 25 MG X2 AT NIGHT
  4. THERALEN [Concomitant]
     Dosage: 40 MG AS NEEDED, MAX 120 MG DAILY
  5. LYRICA [Interacting]
     Dosage: 500 MG DAILY
     Route: 048
     Dates: start: 20111221

REACTIONS (4)
  - DRUG INTERACTION [None]
  - TOXICITY TO VARIOUS AGENTS [None]
  - OVERDOSE [None]
  - CARDIAC FAILURE [None]
